FAERS Safety Report 5892801-8 (Version None)
Quarter: 2008Q3

REPORT INFORMATION
  Report Type: 
  Country: None (occurrence: None)
  Receive Date: 20080919
  Receipt Date: 20061204
  Transmission Date: 20090109
  Serious: Yes (Hospitalization, Other)
  Sender: FDA-Public Use
  Company Number: 2006-01098FE

PATIENT
  Sex: Female

DRUGS (2)
  1. MINIRIN [Suspect]
     Dosage: 200 MG, PO
     Route: 048
     Dates: start: 20060116
  2. OVRANETTE (OVRANETTE) [Suspect]
     Indication: ORAL CONTRACEPTION
     Dosage: PO
     Route: 048
     Dates: start: 20060216, end: 20061010

REACTIONS (4)
  - DRUG EXPOSURE DURING PREGNANCY [None]
  - DRUG INEFFECTIVE [None]
  - DRUG INTERACTION [None]
  - PREGNANCY ON ORAL CONTRACEPTIVE [None]
